FAERS Safety Report 6426610-8 (Version None)
Quarter: 2009Q4

REPORT INFORMATION
  Report Type: 
  Country: None (occurrence: None)
  Receive Date: 20091104
  Receipt Date: 20091026
  Transmission Date: 20100525
  Serious: Yes (Hospitalization)
  Sender: FDA-Public Use
  Company Number: BR-WYE-H11901809

PATIENT
  Sex: Male
  Weight: 56.8 kg

DRUGS (6)
  1. TEMSIROLIMUS [Suspect]
     Indication: RENAL CELL CARCINOMA
     Route: 042
     Dates: start: 20090719
  2. HYDROCHLOROTHIAZIDE [Concomitant]
     Dosage: NOT PROVIDED
     Dates: start: 20040101
  3. ENALAPRIL [Concomitant]
     Dosage: NOT PROVIDED
     Dates: start: 20040101
  4. ATENOLOL [Concomitant]
     Dosage: NOT PROVIDED
     Dates: start: 20040101
  5. BEVACIZUMAB [Suspect]
     Indication: RENAL CELL CARCINOMA
     Route: 042
     Dates: start: 20090819
  6. METFORMIN [Concomitant]
     Indication: DIABETES MELLITUS
     Dosage: NOT PROVIDED
     Dates: start: 20040101

REACTIONS (1)
  - ABDOMINAL PAIN UPPER [None]
